FAERS Safety Report 8895477 (Version 1)
Quarter: 2012Q4

REPORT INFORMATION
  Report Type: 
  Country: US (occurrence: US)
  Receive Date: 20121107
  Receipt Date: 20121107
  Transmission Date: 20130627
  Serious: No
  Sender: FDA-Public Use
  Company Number: US-009507513-1211USA000687

PATIENT
  Age: 41 Year
  Sex: Female

DRUGS (3)
  1. DEXAMETHASONE [Suspect]
     Indication: IDIOPATHIC THROMBOCYTOPENIC PURPURA
     Dosage: 40 mg, qd
     Route: 048
  2. INTRAVENOUS GAMMA GLOBULIN (IVIG) [Suspect]
     Indication: IDIOPATHIC THROMBOCYTOPENIC PURPURA
     Dosage: 500 mg/kg, two consecutive doses
     Route: 042
  3. INTRAVENOUS GAMMA GLOBULIN (IVIG) [Suspect]
     Dosage: 1 g/kg, UNK
     Route: 042

REACTIONS (1)
  - Drug ineffective [Unknown]
